FAERS Safety Report 22657633 (Version 1)
Quarter: 2023Q2

REPORT INFORMATION
  Report Type: Spontaneous
  Country: NO (occurrence: NO)
  Receive Date: 20230630
  Receipt Date: 20230630
  Transmission Date: 20230721
  Serious: Yes (Hospitalization)
  Sender: FDA-Public Use
  Company Number: None

PATIENT
  Age: 56 Year
  Sex: Female

DRUGS (2)
  1. WEGOVY [Suspect]
     Active Substance: SEMAGLUTIDE
     Indication: Menopause
  2. WEGOVY [Suspect]
     Active Substance: SEMAGLUTIDE
     Indication: Weight increased
     Dosage: 1 MG
     Route: 058
     Dates: start: 20230521, end: 20230522

REACTIONS (4)
  - Haematochezia [Recovering/Resolving]
  - Colitis [Recovering/Resolving]
  - Vomiting [Recovered/Resolved]
  - Inappropriate schedule of product administration [Recovered/Resolved]

NARRATIVE: CASE EVENT DATE: 20230521
